FAERS Safety Report 4842533-X (Version None)
Quarter: 2005Q4

REPORT INFORMATION
  Report Type: 
  Country: None (occurrence: None)
  Receive Date: 20051201
  Receipt Date: 20051122
  Transmission Date: 20060501
  Serious: Yes (Other)
  Sender: FDA-Public Use
  Company Number: CA-JNJFOC-20050903832

PATIENT
  Age: 15 Year
  Sex: Male
  Weight: 59.7 kg

DRUGS (10)
  1. REMICADE [Suspect]
     Route: 042
  2. REMICADE [Suspect]
     Indication: CROHN'S DISEASE
     Route: 042
  3. PREDNISONE [Concomitant]
  4. PREDNISONE [Concomitant]
  5. 6-MP [Concomitant]
     Route: 048
  6. AMPICILLIN [Concomitant]
     Route: 042
  7. GENTAMICIN [Concomitant]
     Route: 042
  8. SOLU-MEDROL [Concomitant]
     Route: 042
  9. FLAGYL [Concomitant]
     Route: 042
  10. VANCOMYCIN [Concomitant]
     Route: 042

REACTIONS (2)
  - ARTHRALGIA [None]
  - POLYARTHRITIS [None]
